FAERS Safety Report 5396866-1 (Version None)
Quarter: 2007Q3

REPORT INFORMATION
  Report Type: 
  Country: None (occurrence: None)
  Receive Date: 20070723
  Receipt Date: 20070713
  Transmission Date: 20080115
  Serious: Yes (Other)
  Sender: FDA-Public Use
  Company Number: 2007VX001855

PATIENT
  Age: 18 Year
  Sex: Female

DRUGS (1)
  1. EFUDEX [Suspect]
     Indication: CERVICITIS HUMAN PAPILLOMA VIRUS
     Dosage: ;QW;VAG
     Route: 067
     Dates: start: 20070601

REACTIONS (5)
  - ABDOMINAL PAIN [None]
  - INAPPROPRIATE SCHEDULE OF DRUG ADMINISTRATION [None]
  - INCORRECT DOSE ADMINISTERED [None]
  - NAUSEA [None]
  - VOMITING [None]
